FAERS Safety Report 5397777-8 (Version None)
Quarter: 2007Q3

REPORT INFORMATION
  Report Type: 
  Country: None (occurrence: None)
  Receive Date: 20070726
  Receipt Date: 20070725
  Transmission Date: 20080115
  Serious: Yes (Hospitalization)
  Sender: FDA-Public Use
  Company Number: B0480536A

PATIENT
  Age: 92 Year
  Sex: Male

DRUGS (4)
  1. AMOXICILLIN TRIHYDRATE [Suspect]
     Dosage: 1G TWICE PER DAY
     Dates: start: 20050217, end: 20050223
  2. AUGMENTIN '125' [Suspect]
     Route: 048
     Dates: start: 20050201, end: 20050301
  3. COUMADIN [Concomitant]
     Route: 048
  4. AMIODARONE HCL [Concomitant]
     Route: 048

REACTIONS (6)
  - ASTHENIA [None]
  - BLOOD THYROID STIMULATING HORMONE DECREASED [None]
  - DEHYDRATION [None]
  - DIARRHOEA [None]
  - RENAL FAILURE [None]
  - WEIGHT DECREASED [None]
